FAERS Safety Report 25779077 (Version 3)
Quarter: 2025Q4

REPORT INFORMATION
  Report Type: Spontaneous
  Country: JP (occurrence: JP)
  Receive Date: 20250909
  Receipt Date: 20251006
  Transmission Date: 20260118
  Serious: Yes (Other)
  Sender: PFIZER
  Company Number: JP-PFIZER INC-PV202500107790

PATIENT
  Age: 35 Year
  Sex: Female
  Weight: 70 kg

DRUGS (3)
  1. CABERGOLINE [Suspect]
     Active Substance: CABERGOLINE
     Indication: Infertility
     Dosage: 0.25 MG, WEEKLY
     Route: 048
     Dates: start: 20240830, end: 20250906
  2. NORSHIN PURE [Concomitant]
     Indication: Headache
     Dosage: UNK, AS NEEDED
  3. CLOMID [Concomitant]
     Active Substance: CLOMIPHENE CITRATE
     Indication: Infertility
     Dosage: 50 MG, 1X/DAY, FOR 5 DAYS

REACTIONS (2)
  - Hemianopia [Unknown]
  - Off label use [Unknown]

NARRATIVE: CASE EVENT DATE: 20250101
